FAERS Safety Report 21306119 (Version 1)
Quarter: 2022Q3

REPORT INFORMATION
  Report Type: Spontaneous
  Country: US (occurrence: US)
  Receive Date: 20220908
  Receipt Date: 20220908
  Transmission Date: 20221027
  Serious: Yes (Other)
  Sender: FDA-Public Use
  Company Number: US-AUROBINDO-AUR-APL-2022-035490

PATIENT
  Age: 20 Month
  Sex: Male

DRUGS (3)
  1. METHYLPREDNISOLONE [Suspect]
     Active Substance: METHYLPREDNISOLONE
     Indication: Encephalitis
     Dosage: 30 MILLIGRAM/KILOGRAM,5 DAYS
     Route: 042
  2. RITUXIMAB [Concomitant]
     Active Substance: RITUXIMAB
     Indication: Encephalitis
     Dosage: 375 MILLIGRAM/SQ. METER, 4 CYCLICAL
     Route: 042
  3. CYCLOPHOSPHAMIDE [Concomitant]
     Active Substance: CYCLOPHOSPHAMIDE
     Indication: Encephalitis
     Dosage: 500 MILLIGRAM/SQ. METER, 4 CYCLICAL
     Route: 042

REACTIONS (2)
  - Cerebral atrophy [Recovered/Resolved]
  - Drug ineffective [Unknown]
